FAERS Safety Report 7336489-8 (Version None)
Quarter: 2011Q1

REPORT INFORMATION
  Report Type: 
  Country: None (occurrence: None)
  Receive Date: 20110307
  Receipt Date: 20110225
  Transmission Date: 20110831
  Serious: Yes (Hospitalization)
  Sender: FDA-Public Use
  Company Number: US-CELGENEUS-163-21880-11020126

PATIENT
  Sex: Female

DRUGS (23)
  1. VICODIN ES [Concomitant]
     Route: 065
  2. KEFLEX [Concomitant]
     Route: 065
  3. LANTUS [Concomitant]
     Route: 065
  4. MULTI-VITAMINS [Concomitant]
     Route: 065
  5. PROTONIX [Concomitant]
     Route: 065
  6. REVLIMID [Suspect]
     Dosage: 5 MILLIGRAM
     Route: 048
     Dates: start: 20110101
  7. VICODIN ES [Concomitant]
     Indication: PAIN
  8. IMODIUM [Concomitant]
     Route: 065
  9. VALIUM [Concomitant]
  10. VICODIN ES [Concomitant]
  11. LOMOTIL [Concomitant]
     Route: 065
  12. NORVASC [Concomitant]
     Route: 065
  13. PRILOSEC [Concomitant]
     Route: 065
  14. VALIUM [Concomitant]
     Dosage: 5 TO 7 1/2 MG
     Route: 065
  15. ALEVE [Concomitant]
     Route: 065
  16. DETROL [Concomitant]
     Route: 065
  17. PREDNISONE [Concomitant]
     Dosage: 10 MILLIGRAM
     Route: 065
  18. BUMEX [Concomitant]
     Route: 065
  19. VALIUM [Concomitant]
     Indication: PAIN
  20. ATENOLOL [Concomitant]
     Route: 065
  21. REVLIMID [Suspect]
     Indication: MYELODYSPLASTIC SYNDROME
     Dosage: 5 MILLIGRAM
     Route: 048
     Dates: start: 20101015
  22. REVLIMID [Suspect]
     Dosage: 10 MILLIGRAM
     Route: 048
     Dates: start: 20101201
  23. VOLTAREN [Concomitant]
     Route: 065

REACTIONS (1)
  - ARTHRALGIA [None]
